FAERS Safety Report 8816544 (Version 1)
Quarter: 2012Q4

REPORT INFORMATION
  Report Type: Spontaneous
  Country: US (occurrence: None)
  Receive Date: 20120927
  Receipt Date: 20120927
  Transmission Date: 20130627
  Serious: Yes (Hospitalization)
  Sender: FDA-Public Use
  Company Number: 1421367

PATIENT
  Age: 65 Year
  Sex: Female

DRUGS (24)
  1. CYTARABINE [Suspect]
     Indication: ACUTE MYELOID LEUKEMIA
     Route: 042
     Dates: start: 20120616
  2. DAUNORUBICIN [Suspect]
     Route: 042
     Dates: start: 20120616
  3. SPRYCEL [Suspect]
     Route: 048
     Dates: start: 20120616
  4. ATROVENT [Concomitant]
  5. BENADRYL /00000402/ [Concomitant]
  6. CALCIUM CARBONATE [Concomitant]
  7. FAMOTIDINE [Concomitant]
  8. FLAGYL /00012501/ [Concomitant]
  9. FOLIC ACID [Concomitant]
  10. GOLUTELY [Concomitant]
  11. IMODIUM [Concomitant]
  12. LORAZEPAM [Concomitant]
  13. MAGNESIUM SULFATE [Concomitant]
  14. METOPROLOL TARTRATE [Concomitant]
  15. MICAFUNGIN SODIUM [Concomitant]
  16. NYSTATIN [Suspect]
  17. PREDNISONE [Concomitant]
  18. SINGULAIR [Concomitant]
  19. SOLU MEDROL [Concomitant]
  20. TRAMADOL [Concomitant]
  21. TRAZODONE [Concomitant]
  22. TYLENOL /00020001/ [Concomitant]
  23. VANCOMYCIN [Concomitant]
  24. ZOFRAN /00955301/ [Concomitant]

REACTIONS (4)
  - Mental status changes [None]
  - Delirium [None]
  - Moaning [None]
  - Unresponsive to stimuli [None]
